FAERS Safety Report 23802121 (Version 1)
Quarter: 2024Q2

REPORT INFORMATION
  Report Type: Report from Study
  Country: US (occurrence: US)
  Receive Date: 20240501
  Receipt Date: 20240501
  Transmission Date: 20240716
  Serious: Yes (Other)
  Sender: FDA-Public Use
  Company Number: US-ABBVIE-5543261

PATIENT
  Sex: Female

DRUGS (1)
  1. SKYRIZI [Suspect]
     Active Substance: RISANKIZUMAB-RZAA
     Indication: Product used for unknown indication
     Route: 058
     Dates: start: 20231201

REACTIONS (8)
  - Deafness unilateral [Not Recovered/Not Resolved]
  - Middle ear effusion [Unknown]
  - Ear infection bacterial [Unknown]
  - Fatigue [Recovering/Resolving]
  - Ear swelling [Unknown]
  - Condition aggravated [Recovering/Resolving]
  - Chills [Recovering/Resolving]
  - Pruritus [Recovering/Resolving]
